FAERS Safety Report 21463070 (Version 1)
Quarter: 2022Q4

REPORT INFORMATION
  Report Type: Spontaneous
  Country: US (occurrence: US)
  Receive Date: 20221017
  Receipt Date: 20221017
  Transmission Date: 20230113
  Serious: No
  Sender: FDA-Public Use
  Company Number: US-AMGEN-USASP2022176265

PATIENT
  Age: 58 Year
  Sex: Female

DRUGS (1)
  1. EVENITY [Suspect]
     Active Substance: ROMOSOZUMAB-AQQG
     Indication: Osteoporosis
     Dosage: UNK UNK, QMO
     Route: 058
     Dates: start: 20220810

REACTIONS (4)
  - Nausea [Recovering/Resolving]
  - Abdominal pain upper [Recovering/Resolving]
  - Abnormal faeces [Recovering/Resolving]
  - Blood disorder [Recovering/Resolving]

NARRATIVE: CASE EVENT DATE: 20220810
